FAERS Safety Report 4865397-7 (Version None)
Quarter: 2005Q4

REPORT INFORMATION
  Report Type: 
  Country: None (occurrence: None)
  Receive Date: 20051219
  Receipt Date: 20051215
  Transmission Date: 20060501
  Serious: Yes (Hospitalization)
  Sender: FDA-Public Use
  Company Number: 001#1#2005-02123

PATIENT
  Age: 40 Year
  Sex: Female

DRUGS (2)
  1. CEFUROXIME [Suspect]
     Indication: PHARYNGITIS
     Dosage: 1000 MILLIGRAM
     Route: 048
     Dates: start: 20051020, end: 20051023
  2. KLACID PRO               (CLARITHTROMYCIN) [Concomitant]

REACTIONS (1)
  - ACUTE PSYCHOSIS [None]
